FAERS Safety Report 4380799-3 (Version None)
Quarter: 2004Q2

REPORT INFORMATION
  Report Type: 
  Country: None (occurrence: None)
  Receive Date: 20040616
  Receipt Date: 20040604
  Transmission Date: 20050107
  Serious: Yes (Hospitalization, Disabling, Other)
  Sender: FDA-Public Use
  Company Number: 2004006229

PATIENT
  Age: 59 Year
  Sex: Male

DRUGS (12)
  1. VFEND [Suspect]
     Indication: LUNG INFILTRATION
     Dosage: 400 MG BID, ORAL
     Route: 048
     Dates: start: 20031218, end: 20040128
  2. ACYCLOVIR [Concomitant]
  3. MEROPENEM (MEROPENEM) [Concomitant]
  4. VANCOMYCIN [Concomitant]
  5. CLINDAMYCIN HCL [Concomitant]
  6. RED BLOOD CELLS [Concomitant]
  7. DIPYRIDAMOLE [Concomitant]
  8. CYTARABINE [Concomitant]
  9. ETOPOSIDE PHOSPHATE (ETOPOSIDE PHOSPHATE) [Concomitant]
  10. MITOXANTRONE [Concomitant]
  11. CYTARABINE [Concomitant]
  12. AMSACRINE (AMSACRINE) [Concomitant]

REACTIONS (19)
  - ABNORMAL BEHAVIOUR [None]
  - AMNESIA [None]
  - APATHY [None]
  - ASTHENIA [None]
  - BLOOD LUTEINISING HORMONE DECREASED [None]
  - BLOOD TESTOSTERONE DECREASED [None]
  - CONFUSIONAL STATE [None]
  - DEMENTIA [None]
  - DEPRESSED LEVEL OF CONSCIOUSNESS [None]
  - DEPRESSION [None]
  - DISTURBANCE IN ATTENTION [None]
  - DRUG TOXICITY [None]
  - HEADACHE [None]
  - HYPOTHYROIDISM [None]
  - MENTAL DISORDER DUE TO A GENERAL MEDICAL CONDITION [None]
  - RASH [None]
  - SOMNOLENCE [None]
  - STUPOR [None]
  - VISUAL DISTURBANCE [None]
